FAERS Safety Report 6173727-1 (Version None)
Quarter: 2009Q2

REPORT INFORMATION
  Report Type: 
  Country: None (occurrence: None)
  Receive Date: 20090429
  Receipt Date: 20090429
  Transmission Date: 20091009
  Serious: Yes (Other)
  Sender: FDA-Public Use
  Company Number: None

PATIENT
  Sex: Male
  Weight: 71.6683 kg

DRUGS (3)
  1. CLOZAPINE [Suspect]
     Indication: SCHIZOPHRENIA, PARANOID TYPE
     Dosage: 50MG QAM PO
     Route: 048
     Dates: start: 20090212
  2. CLOZAPINE [Suspect]
     Dosage: 100MG QHS PO
     Route: 048
  3. CLONAZEPAM [Concomitant]

REACTIONS (6)
  - BLOOD GLUCOSE INCREASED [None]
  - BLOOD PRESSURE DECREASED [None]
  - BRADYCARDIA [None]
  - HYPOGLYCAEMIA [None]
  - SEDATION [None]
  - UNRESPONSIVE TO STIMULI [None]
